FAERS Safety Report 24434901 (Version 5)
Quarter: 2025Q1

REPORT INFORMATION
  Report Type: Report from Study
  Country: US (occurrence: US)
  Receive Date: 20241014
  Receipt Date: 20250220
  Transmission Date: 20250409
  Serious: No
  Sender: SUNOVION
  Company Number: US-SUMITOMO PHARMA SWITZERLAND GMBH-2024SPA003333

PATIENT

DRUGS (2)
  1. ORGOVYX [Suspect]
     Active Substance: RELUGOLIX
     Indication: Prostate cancer
     Route: 048
  2. ORGOVYX [Suspect]
     Active Substance: RELUGOLIX
     Dosage: 120 MG, QD
     Route: 048
     Dates: start: 20240910

REACTIONS (14)
  - Pain [Unknown]
  - Pollakiuria [Unknown]
  - Quality of life decreased [Unknown]
  - Nocturia [Unknown]
  - Night sweats [Unknown]
  - Hot flush [Unknown]
  - Insomnia [Unknown]
  - Myalgia [Unknown]
  - Fatigue [Unknown]
  - Anaemia [Unknown]
  - Red blood cell count decreased [Unknown]
  - Haemoglobin decreased [Unknown]
  - Asthenia [Unknown]
  - Incorrect dose administered [Unknown]
